FAERS Safety Report 25213299 (Version 1)
Quarter: 2025Q2

REPORT INFORMATION
  Report Type: Spontaneous
  Country: CN (occurrence: CN)
  Receive Date: 20250418
  Receipt Date: 20250418
  Transmission Date: 20250716
  Serious: Yes (Other)
  Sender: PFIZER
  Company Number: CN-PFIZER INC-PV202500042628

PATIENT
  Age: 37 Year
  Sex: Male
  Weight: 81 kg

DRUGS (1)
  1. CYTARABINE [Suspect]
     Active Substance: CYTARABINE
     Indication: Acute myeloid leukaemia
     Dosage: 50 MG, 1X/DAY
     Route: 037
     Dates: start: 20240926, end: 20250222

REACTIONS (4)
  - Hallucination [Recovering/Resolving]
  - Inappropriate affect [Recovering/Resolving]
  - Agitation [Recovering/Resolving]
  - Neuropsychological symptoms [Recovering/Resolving]

NARRATIVE: CASE EVENT DATE: 20250113
